FAERS Safety Report 9055771 (Version 2)
Quarter: 2013Q1

REPORT INFORMATION
  Report Type: Spontaneous
  Country: FR (occurrence: FR)
  Receive Date: 20130206
  Receipt Date: 20130312
  Transmission Date: 20140127
  Serious: Yes (Hospitalization)
  Sender: FDA-Public Use
  Company Number: FR-ROCHE-1187336

PATIENT
  Age: 77 None
  Sex: Female

DRUGS (7)
  1. ROCEPHINE [Suspect]
     Indication: ARTHRITIS INFECTIVE
     Route: 042
     Dates: start: 20121004, end: 20130123
  2. OXYNORM [Concomitant]
     Indication: PRODUCT USED FOR UNKNOWN INDICATION
     Route: 048
     Dates: start: 20121002
  3. COUMADINE [Concomitant]
     Indication: PRODUCT USED FOR UNKNOWN INDICATION
     Route: 048
     Dates: start: 20121110
  4. ENALAPRIL [Concomitant]
  5. CRESTOR [Concomitant]
  6. VANCO [Concomitant]
  7. TIENAM [Concomitant]

REACTIONS (1)
  - Cholelithiasis [Recovered/Resolved]
